FAERS Safety Report 6180553-6 (Version None)
Quarter: 2009Q2

REPORT INFORMATION
  Report Type: 
  Country: None (occurrence: None)
  Receive Date: 20090506
  Receipt Date: 20090429
  Transmission Date: 20091009
  Serious: Yes (Other)
  Sender: FDA-Public Use
  Company Number: CA-BAYER-200919432NA

PATIENT
  Age: 94 Year
  Sex: Female

DRUGS (5)
  1. AVELOX [Suspect]
     Indication: DRUG USE FOR UNKNOWN INDICATION
     Route: 042
  2. AVELOX [Suspect]
     Route: 048
  3. DIMENHYDRINATE [Concomitant]
     Route: 042
  4. TYLENOL [Concomitant]
     Dosage: TOTAL DAILY DOSE: 2000 MG  UNIT DOSE: 500 MG
     Route: 048
  5. PANTOPRAZOLE SODIUM [Concomitant]

REACTIONS (6)
  - AGITATION [None]
  - DELIRIUM [None]
  - DYSARTHRIA [None]
  - MANIA [None]
  - RESTLESSNESS [None]
  - TREMOR [None]
